FAERS Safety Report 12240792 (Version 1)
Quarter: 2016Q2

REPORT INFORMATION
  Report Type: Report from Study
  Country: FR (occurrence: FR)
  Receive Date: 20160406
  Receipt Date: 20160406
  Transmission Date: 20160815
  Serious: Yes (Other)
  Sender: FDA-Public Use
  Company Number: FR-ROCHE-1736472

PATIENT

DRUGS (5)
  1. TOCILIZUMAB [Suspect]
     Active Substance: TOCILIZUMAB
     Indication: RHEUMATOID ARTHRITIS
     Dosage: OF BODY WEIGHT
     Route: 042
  2. ABATACEPT [Suspect]
     Active Substance: ABATACEPT
     Indication: RHEUMATOID ARTHRITIS
     Route: 042
  3. ABATACEPT [Suspect]
     Active Substance: ABATACEPT
     Route: 042
  4. ABATACEPT [Suspect]
     Active Substance: ABATACEPT
     Route: 042
  5. RITUXIMAB [Suspect]
     Active Substance: RITUXIMAB
     Indication: RHEUMATOID ARTHRITIS
     Dosage: TWO INFUSION
     Route: 042

REACTIONS (7)
  - Lung neoplasm malignant [Unknown]
  - Treatment failure [Unknown]
  - Hepatic enzyme increased [Unknown]
  - Drug intolerance [Unknown]
  - Infection [Unknown]
  - Cough [Unknown]
  - Cytopenia [Unknown]
